FAERS Safety Report 7701607-6 (Version None)
Quarter: 2011Q3

REPORT INFORMATION
  Report Type: 
  Country: None (occurrence: None)
  Receive Date: 20110822
  Receipt Date: 20110816
  Transmission Date: 20111222
  Serious: Yes (Other)
  Sender: FDA-Public Use
  Company Number: GB-PFIZER INC-2011180699

PATIENT
  Age: 10 Month
  Sex: Male
  Weight: 10.6 kg

DRUGS (2)
  1. REFACTO [Suspect]
     Indication: HAEMOPHILIA
  2. REFACTO [Suspect]
     Indication: PROPHYLAXIS
     Dosage: 1000 IU, ALTERNATE DAY
     Route: 042
     Dates: start: 20110628

REACTIONS (2)
  - FACTOR VIII INHIBITION [None]
  - VARICELLA [None]
